FAERS Safety Report 18941669 (Version 4)
Quarter: 2021Q2

REPORT INFORMATION
  Report Type: Report from Study
  Country: FR (occurrence: FR)
  Receive Date: 20210225
  Receipt Date: 20210428
  Transmission Date: 20210717
  Serious: Yes (Other)
  Sender: FDA-Public Use
  Company Number: FR-GLAXOSMITHKLINE-FR2020EME197624

PATIENT
  Age: 55 Year
  Sex: Female
  Weight: 58 kg

DRUGS (6)
  1. NIRAPARIB [Suspect]
     Active Substance: NIRAPARIB
     Indication: OVARIAN CANCER
     Dosage: 200 MG
     Route: 048
     Dates: start: 20200818, end: 20200915
  2. NIRAPARIB [Suspect]
     Active Substance: NIRAPARIB
     Dosage: 100 MG, QD
     Route: 048
     Dates: start: 20201216
  3. NIRAPARIB [Suspect]
     Active Substance: NIRAPARIB
     Dosage: 100 MG
     Route: 048
     Dates: start: 20200819, end: 20201110
  4. NIRAPARIB [Suspect]
     Active Substance: NIRAPARIB
     Dosage: 200 MG, QD
     Route: 048
     Dates: start: 20200924
  5. NIRAPARIB [Suspect]
     Active Substance: NIRAPARIB
     Dosage: 100 MG, QD
     Route: 048
     Dates: start: 20201117
  6. NIRAPARIB [Suspect]
     Active Substance: NIRAPARIB
     Dosage: 100 MG
     Route: 048
     Dates: start: 20201125

REACTIONS (14)
  - Venous thrombosis [Recovering/Resolving]
  - White blood cell disorder [Unknown]
  - Pancytopenia [Unknown]
  - Neutropenia [Unknown]
  - White blood cell disorder [Unknown]
  - Platelet count abnormal [Recovered/Resolved]
  - White blood cell disorder [Unknown]
  - Anaemia [Unknown]
  - Haemoglobin abnormal [Recovered/Resolved]
  - Neutrophil count abnormal [Unknown]
  - Thrombocytopenia [Recovered/Resolved]
  - Haemoglobin abnormal [Recovered/Resolved]
  - Neutrophil count abnormal [Unknown]
  - Neutrophil count abnormal [Unknown]

NARRATIVE: CASE EVENT DATE: 20201020
